FAERS Safety Report 4521166-9 (Version None)
Quarter: 2004Q4

REPORT INFORMATION
  Report Type: 
  Country: None (occurrence: None)
  Receive Date: 20041203
  Receipt Date: 20041119
  Transmission Date: 20050328
  Serious: No
  Sender: FDA-Public Use
  Company Number: 2004AP03577

PATIENT
  Age: 76 Year
  Sex: Female

DRUGS (9)
  1. DIPRIVAN [Suspect]
     Indication: SEDATION
     Dosage: MAX. DOSE 12 ML/HR. AVERAGE DOSE 8-10 ML/HR
     Dates: start: 20040610, end: 20040707
  2. FENTANEST [Concomitant]
  3. CARBENIN [Concomitant]
  4. ELASPOL [Concomitant]
  5. CIPROXAN [Concomitant]
  6. CATABON [Concomitant]
  7. VANCOMYCIN [Concomitant]
  8. PAZUCROSS [Concomitant]
  9. SOLU-MEDROL [Concomitant]

REACTIONS (3)
  - DELAYED RECOVERY FROM ANAESTHESIA [None]
  - DEPRESSED LEVEL OF CONSCIOUSNESS [None]
  - UNRESPONSIVE TO PAIN STIMULI [None]
